FAERS Safety Report 5969414-2 (Version None)
Quarter: 2008Q4

REPORT INFORMATION
  Report Type: 
  Country: None (occurrence: None)
  Receive Date: 20081126
  Receipt Date: 20080902
  Transmission Date: 20090506
  Serious: No
  Sender: FDA-Public Use
  Company Number: US-ABBOTT-08P-163-0473407-00

PATIENT
  Sex: Female

DRUGS (11)
  1. SIMCOR [Suspect]
     Indication: BLOOD CHOLESTEROL INCREASED
     Route: 048
     Dates: start: 20080811, end: 20080826
  2. FENOFIBRATE [Concomitant]
     Indication: BLOOD CHOLESTEROL
     Route: 048
  3. GLUCOPHASE [Concomitant]
     Indication: DIABETES MELLITUS
     Route: 048
     Dates: start: 20030101
  4. SITAGLIPTIN PHOSPHATE [Concomitant]
     Indication: DIABETES MELLITUS
     Route: 048
  5. ACETYLSALICYLIC ACID SRT [Concomitant]
     Indication: DRUG USE FOR UNKNOWN INDICATION
     Route: 048
  6. PAROXETINE HCL [Concomitant]
     Indication: DEPRESSION
     Route: 048
  7. LITHIUM CARBONATE [Concomitant]
     Indication: BIPOLAR DISORDER
     Route: 048
  8. CLONAZEPAM [Concomitant]
     Indication: ANXIETY
     Dosage: 0.25 MILLIGRAM AM, 0,25 MILLIGRAM AFTERNOON, 1.5 MILLIGRAM AT NIGHT
     Route: 048
  9. FEXOFENADINE [Concomitant]
     Indication: HYPERSENSITIVITY
     Route: 048
  10. TRIAMCINOLONE ACETONIDE [Concomitant]
     Indication: HYPERSENSITIVITY
     Route: 045
  11. OLOPATADINE HYDROCHLORIDE [Concomitant]
     Indication: HYPERSENSITIVITY
     Route: 047

REACTIONS (3)
  - DEPRESSION [None]
  - HYPERHIDROSIS [None]
  - MEMORY IMPAIRMENT [None]
